FAERS Safety Report 7938802-7 (Version None)
Quarter: 2011Q4

REPORT INFORMATION
  Report Type: 
  Country: None (occurrence: None)
  Receive Date: 20111124
  Receipt Date: 20111118
  Transmission Date: 20120403
  Serious: No
  Sender: FDA-Public Use
  Company Number: US-BIOGENIDEC-2011BI044256

PATIENT
  Age: 41 Year
  Sex: Female

DRUGS (2)
  1. TYSABRI [Suspect]
     Indication: MULTIPLE SCLEROSIS
     Route: 042
     Dates: start: 20091204, end: 20111028
  2. GILENYA [Concomitant]
     Indication: MULTIPLE SCLEROSIS
     Dates: start: 20111101

REACTIONS (2)
  - TREMOR [None]
  - HEADACHE [None]
